FAERS Safety Report 5815492-0 (Version None)
Quarter: 2008Q3

REPORT INFORMATION
  Report Type: 
  Country: None (occurrence: None)
  Receive Date: 20080718
  Receipt Date: 20080703
  Transmission Date: 20090109
  Serious: Yes (Other)
  Sender: FDA-Public Use
  Company Number: ES-GENENTECH-263957

PATIENT
  Age: 80 Year
  Sex: Male

DRUGS (1)
  1. LUCENTIS [Suspect]
     Indication: DRUG USE FOR UNKNOWN INDICATION

REACTIONS (3)
  - RETINAL DETACHMENT [None]
  - RETINAL DISORDER [None]
  - RETINAL HAEMORRHAGE [None]
